FAERS Safety Report 12833657 (Version 1)
Quarter: 2016Q4

REPORT INFORMATION
  Report Type: Spontaneous
  Country: FR (occurrence: FR)
  Receive Date: 20161010
  Receipt Date: 20161010
  Transmission Date: 20170207
  Serious: Yes (Other)
  Sender: FDA-Public Use
  Company Number: FR-JNJFOC-20150213207

PATIENT
  Age: 26 Year
  Sex: Female
  Weight: 67 kg

DRUGS (3)
  1. SPASFON [Concomitant]
     Active Substance: PHLOROGLUCINOL
     Indication: PAIN
     Route: 065
  2. ZYTIGA [Suspect]
     Active Substance: ABIRATERONE ACETATE
     Indication: ACCIDENTAL EXPOSURE TO PRODUCT
     Route: 062
     Dates: start: 20150305, end: 20150305
  3. FUMAFER [Concomitant]
     Active Substance: FERROUS FUMARATE
     Dosage: 2 TABLETS/DAY
     Route: 065

REACTIONS (3)
  - Exposure during pregnancy [Recovered/Resolved]
  - Gestational diabetes [Unknown]
  - Hypotension [Unknown]

NARRATIVE: CASE EVENT DATE: 20150305
